FAERS Safety Report 10144318 (Version 6)
Quarter: 2020Q3

REPORT INFORMATION
  Report Type: Report from Study
  Country: JP (occurrence: JP)
  Receive Date: 20140430
  Receipt Date: 20200921
  Transmission Date: 20201102
  Serious: Yes (Death, Other)
  Sender: FDA-Public Use
  Company Number: JP-TAKEDA-2014TJP005378

PATIENT
  Age: 40 Year
  Sex: Male
  Weight: 64.8 kg

DRUGS (14)
  1. VANCOMYCIN                         /00314402/ [Suspect]
     Active Substance: VANCOMYCIN
     Indication: NEUTROPENIC SEPSIS
     Dosage: 1.5 G, QD
     Route: 042
     Dates: start: 20131027, end: 20131109
  2. GLYCEOL                            /00744501/ [Suspect]
     Active Substance: GLYCERIN
     Indication: BRAIN OEDEMA
     Dosage: 200 ML, QD
     Route: 041
     Dates: start: 20131030, end: 20131109
  3. HYDROCORTISONE. [Suspect]
     Active Substance: HYDROCORTISONE
     Indication: PYREXIA
     Dosage: 50 MG, UNK
     Route: 041
     Dates: start: 20131027, end: 20131109
  4. LACTEC                             /00490001/ [Concomitant]
     Dosage: UNK
     Dates: start: 20131027, end: 20131109
  5. BFLUID [Concomitant]
     Active Substance: AMINO ACIDS\DEXTROSE\ELECTROLYTES NOS\VITAMINS
     Dosage: UNK
     Dates: start: 20131102, end: 20131106
  6. CHLORTRIMETON [Suspect]
     Active Substance: CHLORPHENIRAMINE MALEATE
     Indication: ALLERGY PROPHYLAXIS
     Dosage: 10 MG, QD
     Route: 065
     Dates: start: 20131027, end: 20131107
  7. INOTUZUMAB OZOGAMICIN [Suspect]
     Active Substance: INOTUZUMAB OZOGAMICIN
     Indication: ACUTE LYMPHOCYTIC LEUKAEMIA
     Dosage: 1.42 MG, WEEKLY IN 3?4 WEEK CYCLES
     Route: 042
     Dates: start: 20131022, end: 20131028
  8. NICARDIPINE                        /00639802/ [Suspect]
     Active Substance: NICARDIPINE HYDROCHLORIDE
     Indication: HYPERTENSION
     Dosage: 30 MG, AS NEEDED
     Route: 041
     Dates: start: 20131103, end: 20131109
  9. LANSOPRAZOLE. [Suspect]
     Active Substance: LANSOPRAZOLE
     Indication: PROPHYLAXIS AGAINST GASTROINTESTINAL ULCER
     Dosage: 30 MILLIGRAM
     Route: 041
  10. MEROPEN                            /01250501/ [Suspect]
     Active Substance: MEROPENEM
     Indication: NEUTROPENIC SEPSIS
     Dosage: 1 G, QD
     Route: 041
     Dates: start: 20131027, end: 20131108
  11. PHYSIO 70 [Concomitant]
     Dosage: UNK
     Dates: start: 20131102, end: 20131106
  12. FENTANYL CITRATE. [Concomitant]
     Active Substance: FENTANYL CITRATE
     Dosage: UNK
     Dates: start: 20131027, end: 20131102
  13. HUMULIN R [Suspect]
     Active Substance: INSULIN HUMAN
     Indication: HYPERGLYCAEMIA
     Dosage: 50 IU, AS NEEDED
     Route: 041
     Dates: start: 20131102, end: 20131109
  14. GRAN [Suspect]
     Active Substance: FILGRASTIM
     Indication: NEUTROPENIA
     Dosage: 75 ?G, QD
     Route: 058
     Dates: start: 20131025, end: 20131108

REACTIONS (5)
  - Venoocclusive liver disease [Not Recovered/Not Resolved]
  - Septic embolus [Not Recovered/Not Resolved]
  - Neutropenic sepsis [Fatal]
  - Brain abscess [Not Recovered/Not Resolved]
  - Multiple organ dysfunction syndrome [Not Recovered/Not Resolved]

NARRATIVE: CASE EVENT DATE: 20131025
